FAERS Safety Report 4404217-1 (Version None)
Quarter: 2004Q3

REPORT INFORMATION
  Report Type: 
  Country: None (occurrence: None)
  Receive Date: 20040719
  Receipt Date: 20040702
  Transmission Date: 20050211
  Serious: Yes (Hospitalization)
  Sender: FDA-Public Use
  Company Number: 6009529

PATIENT
  Age: 58 Year
  Sex: Male

DRUGS (7)
  1. BISOPROLOL FUMARATE [Suspect]
     Indication: HYPERTENSION
     Dosage: 5,00 MG (5 MG,  1 IN 1 D)
     Route: 048
     Dates: start: 20030201, end: 20040302
  2. BISOPROLOL FUMARATE [Suspect]
     Indication: MYOCARDIAL ISCHAEMIA
     Dosage: 5,00 MG (5 MG,  1 IN 1 D)
     Route: 048
     Dates: start: 20030201, end: 20040302
  3. RAMIPRIL [Suspect]
     Indication: HYPERTENSION
     Dosage: 5, 00 MG (5 MG, 1 IN 1 D)
     Route: 048
     Dates: start: 20030201
  4. ACETYLSALICYLIC ACID SRT [Concomitant]
  5. ISCOVER (CLOPIDOGREL SULFATE) [Concomitant]
  6. LOCOL (FLUVASTATIN SODIUM) [Concomitant]
  7. METFORMIN HCL [Concomitant]

REACTIONS (2)
  - DRUG INTERACTION [None]
  - ERECTILE DYSFUNCTION [None]
